FAERS Safety Report 4772864-3 (Version None)
Quarter: 2005Q3

REPORT INFORMATION
  Report Type: 
  Country: None (occurrence: None)
  Receive Date: 20050916
  Receipt Date: 20050907
  Transmission Date: 20060218
  Serious: No
  Sender: FDA-Public Use
  Company Number: 05H-124-0302371-00

PATIENT
  Sex: Male

DRUGS (1)
  1. ABOCAIN INJECTION (BUPIVACAINE HYDROCHLROIDE INJECTION) (BUPIVACAINE [Suspect]
     Indication: SPINAL ANAESTHESIA
     Dosage: INTRATHECAL
     Route: 037
     Dates: start: 20050609, end: 20050609

REACTIONS (7)
  - ABNORMAL BEHAVIOUR [None]
  - CONFUSIONAL STATE [None]
  - DEPRESSED LEVEL OF CONSCIOUSNESS [None]
  - HEADACHE [None]
  - HYPERTENSION [None]
  - PAIN [None]
  - POST PROCEDURAL COMPLICATION [None]
